FAERS Safety Report 4304147-X (Version None)
Quarter: 2004Q1

REPORT INFORMATION
  Report Type: 
  Country: None (occurrence: None)
  Receive Date: 20040225
  Receipt Date: 20030814
  Transmission Date: 20041129
  Serious: Yes (Hospitalization, Other)
  Sender: FDA-Public Use
  Company Number: PHNU2003DE03091

PATIENT
  Sex: Female

DRUGS (6)
  1. SOTALOL HYDROCHLORIDE [Concomitant]
     Dosage: .5 DF, BID
  2. TROMCARDIN FORTE [Concomitant]
     Dosage: 1 DF, QD
  3. STARLIX [Suspect]
     Indication: DIABETES MELLITUS
     Dosage: 240 MG/D
     Route: 048
     Dates: start: 20030201
  4. L-THYROXIN - SLOW RELEASE [Concomitant]
     Dosage: .5 DF, QD
  5. NITREN [Concomitant]
     Dosage: 1 DF, BID
  6. VALERIAN [Concomitant]
     Dosage: UNK, PRN

REACTIONS (9)
  - ALANINE AMINOTRANSFERASE INCREASED [None]
  - ASPARTATE AMINOTRANSFERASE INCREASED [None]
  - BILE DUCT STONE [None]
  - BLOOD ALKALINE PHOSPHATASE INCREASED [None]
  - CHOLESTASIS [None]
  - GAMMA-GLUTAMYLTRANSFERASE INCREASED [None]
  - LEUCINE AMINOPEPTIDASE INCREASED [None]
  - LIVER DISORDER [None]
  - WEIGHT DECREASED [None]
